FAERS Safety Report 23272998 (Version 1)
Quarter: 2023Q4

REPORT INFORMATION
  Report Type: Spontaneous
  Country: KR (occurrence: KR)
  Receive Date: 20231207
  Receipt Date: 20231207
  Transmission Date: 20240109
  Serious: Yes (Death)
  Sender: FDA-Public Use
  Company Number: KR-009507513-2312KOR000639

PATIENT
  Sex: Male

DRUGS (5)
  1. JANUVIA [Suspect]
     Active Substance: SITAGLIPTIN PHOSPHATE
     Dosage: 1 DOSAGE FORM, QD
     Dates: start: 20220207, end: 20220222
  2. METFORMIN HYDROCHLORIDE [Suspect]
     Active Substance: METFORMIN HYDROCHLORIDE
     Dosage: 1 DOSAGE FORM, BID
     Dates: start: 20220207, end: 20220222
  3. EZETIMIBE\ROSUVASTATIN CALCIUM [Suspect]
     Active Substance: EZETIMIBE\ROSUVASTATIN CALCIUM
     Dosage: 1 DOSAGE FORM, QD
     Dates: start: 20220207, end: 20220222
  4. CHOLINE FENOFIBRATE [Suspect]
     Active Substance: CHOLINE FENOFIBRATE
     Dosage: 1 DOSAGE FORM, QD
     Dates: start: 20220207, end: 20220222
  5. FEBUXOSTAT [Suspect]
     Active Substance: FEBUXOSTAT
     Dosage: 1 DOSAGE FORM, QD
     Dates: start: 20220207, end: 20220222

REACTIONS (1)
  - Dyspepsia [Fatal]

NARRATIVE: CASE EVENT DATE: 20220208
